FAERS Safety Report 5061419-1 (Version None)
Quarter: 2006Q3

REPORT INFORMATION
  Report Type: 
  Country: None (occurrence: None)
  Receive Date: 20060719
  Receipt Date: 20060719
  Transmission Date: 20061208
  Serious: Yes (Hospitalization)
  Sender: FDA-Public Use
  Company Number: None

PATIENT
  Age: 80 Year
  Sex: Male

DRUGS (11)
  1. METOPROLOL TARTRATE [Suspect]
     Indication: HYPERTENSION
     Dosage: 50 MG BID
     Dates: start: 19980101
  2. PLAVIX [Concomitant]
  3. B 12 [Concomitant]
  4. FELODIPINE [Concomitant]
  5. ISOSORBIDE DINITRATE [Concomitant]
  6. OMEPRAZOLE [Concomitant]
  7. SERTRALINE [Concomitant]
  8. SULINDAC [Concomitant]
  9. TERAZOSIN HCL [Concomitant]
  10. TRAZODONE HCL [Concomitant]
  11. OSCAL [Concomitant]

REACTIONS (2)
  - BRADYCARDIA [None]
  - SYNCOPE [None]
